FAERS Safety Report 4701036-3 (Version None)
Quarter: 2005Q2

REPORT INFORMATION
  Report Type: 
  Country: None (occurrence: None)
  Receive Date: 20050624
  Receipt Date: 20040913
  Transmission Date: 20051028
  Serious: Yes (Death)
  Sender: FDA-Public Use
  Company Number: 380492

PATIENT
  Age: 55 Year
  Sex: Female
  Weight: 54.4 kg

DRUGS (1)
  1. XELODA [Suspect]
     Indication: BREAST CANCER

REACTIONS (1)
  - BREAST CANCER [None]
